FAERS Safety Report 21802381 (Version 1)
Quarter: 2022Q4

REPORT INFORMATION
  Report Type: Spontaneous
  Country: LK (occurrence: LK)
  Receive Date: 20221230
  Receipt Date: 20221230
  Transmission Date: 20230112
  Serious: Yes (Other)
  Sender: FDA-Public Use
  Company Number: LK-ANIPHARMA-2022-LK-000004

PATIENT
  Age: 39 Year
  Sex: Female

DRUGS (4)
  1. CLOPIDOGREL BISULFATE [Suspect]
     Active Substance: CLOPIDOGREL BISULFATE
     Indication: Angina unstable
     Dosage: 300 MG ONCE
  2. ASPIRIN [Suspect]
     Active Substance: ASPIRIN
     Indication: Angina unstable
     Dosage: 300 MG ONCE
     Route: 048
  3. ENOXAPARIN [Suspect]
     Active Substance: ENOXAPARIN
     Indication: Angina unstable
     Dosage: 60 MG TWICE DAILY
     Route: 058
  4. ATORVASTATIN [Concomitant]
     Active Substance: ATORVASTATIN
     Dosage: 40 MG

REACTIONS (1)
  - Splenic rupture [Recovered/Resolved]
